FAERS Safety Report 5733634-2 (Version None)
Quarter: 2008Q2

REPORT INFORMATION
  Report Type: 
  Country: None (occurrence: None)
  Receive Date: 20080509
  Receipt Date: 20080114
  Transmission Date: 20081010
  Serious: No
  Sender: FDA-Public Use
  Company Number: A0703709A

PATIENT
  Age: 17 Year

DRUGS (1)
  1. ALTABAX [Suspect]
     Indication: IMPETIGO
     Route: 061

REACTIONS (2)
  - ECZEMA [None]
  - SKIN IRRITATION [None]
